FAERS Safety Report 16583025 (Version 1)
Quarter: 2019Q3

REPORT INFORMATION
  Report Type: Spontaneous
  Country: US (occurrence: US)
  Receive Date: 20190717
  Receipt Date: 20190717
  Transmission Date: 20191004
  Serious: No
  Sender: FDA-Public Use
  Company Number: US-PFIZER INC-2019298238

PATIENT
  Age: 64 Year
  Sex: Male
  Weight: 88 kg

DRUGS (2)
  1. CHANTIX [Suspect]
     Active Substance: VARENICLINE TARTRATE
     Indication: SMOKING CESSATION THERAPY
     Dosage: 1 DF, DAILY [ON DAY 1, 2 AND 3 HE TOOK ONE A DAY, THEN THE DOSE INCREASED TO 2 EACH DAY]
     Route: 048
     Dates: start: 201906
  2. CHANTIX [Suspect]
     Active Substance: VARENICLINE TARTRATE
     Dosage: 2 DF, DAILY [ON DAY 1, 2 AND 3 HE TOOK ONE A DAY, THEN THE DOSE INCREASED TO 2 EACH DAY]
     Route: 048

REACTIONS (14)
  - Skin reaction [Not Recovered/Not Resolved]
  - Rash [Not Recovered/Not Resolved]
  - Swelling [Not Recovered/Not Resolved]
  - Drug ineffective [Unknown]
  - Condition aggravated [Not Recovered/Not Resolved]
  - Gait disturbance [Not Recovered/Not Resolved]
  - Abnormal dreams [Not Recovered/Not Resolved]
  - Vasoconstriction [Not Recovered/Not Resolved]
  - Libido decreased [Unknown]
  - Intentional product misuse [Unknown]
  - Hypoaesthesia [Not Recovered/Not Resolved]
  - Erythema [Not Recovered/Not Resolved]
  - Malaise [Unknown]
  - Somnambulism [Unknown]

NARRATIVE: CASE EVENT DATE: 2019
